FAERS Safety Report 9789199 (Version 1)
Quarter: 2013Q4

REPORT INFORMATION
  Report Type: Spontaneous
  Country: US (occurrence: US)
  Receive Date: 20131230
  Receipt Date: 20131230
  Transmission Date: 20140711
  Serious: Yes (Life-Threatening, Hospitalization)
  Sender: FDA-Public Use
  Company Number: PHHY2013US150554

PATIENT
  Age: 73 Year
  Sex: Male

DRUGS (2)
  1. CLINDAMYCIN [Suspect]
     Route: 048
  2. CLINDAMYCIN [Suspect]
     Dosage: 600 MG, BID
     Route: 042

REACTIONS (12)
  - Acute hepatic failure [Recovering/Resolving]
  - Yellow skin [Unknown]
  - Abdominal discomfort [Unknown]
  - Nausea [Unknown]
  - Decreased appetite [Unknown]
  - Fatigue [Unknown]
  - Jaundice [Unknown]
  - Abdominal tenderness [Unknown]
  - Hepatic encephalopathy [Not Recovered/Not Resolved]
  - Confusional state [Recovering/Resolving]
  - Blood pressure decreased [Not Recovered/Not Resolved]
  - Acute respiratory distress syndrome [Unknown]
